FAERS Safety Report 9625533 (Version 2)
Quarter: 2013Q4

REPORT INFORMATION
  Report Type: Report from Study
  Country: BR (occurrence: BR)
  Receive Date: 20131016
  Receipt Date: 20131112
  Transmission Date: 20140711
  Serious: Yes (Death, Other)
  Sender: FDA-Public Use
  Company Number: PHHY2013BR115029

PATIENT
  Age: 76 Year
  Sex: Female
  Weight: 82 kg

DRUGS (11)
  1. EXELON PATCH [Suspect]
     Indication: DEMENTIA ALZHEIMER^S TYPE
     Dosage: 9.5 MG, DAILY
     Route: 062
  2. DIOVAN HCT [Suspect]
     Indication: HYPERTENSION
     Dosage: 1 DF, UNK (320 MG VALS, 25 MG HYDR) AT 8 AM
     Route: 048
  3. RASILEZ [Concomitant]
     Indication: HYPERTENSION
     Dosage: 1 DF, DAILY (AT 8 AM)
     Dates: end: 20130823
  4. ATENSINA [Concomitant]
     Indication: HYPERTENSION
     Dosage: 3 DF, DAILY
     Route: 048
     Dates: end: 20130823
  5. PROLOPA [Concomitant]
     Indication: PARKINSON^S DISEASE
     Dosage: 0.25 DF, TID
     Dates: start: 201303, end: 20130819
  6. PERIDAL//DOMPERIDONE [Concomitant]
     Indication: GASTRIC DISORDER
     Dosage: 2 DF, DAILY (10 MG)
     Route: 048
     Dates: start: 20111007, end: 20130819
  7. PANTOPRAZOLE [Concomitant]
     Indication: GASTRIC DISORDER
     Dosage: 2 DF, DAILY
     Route: 048
     Dates: start: 20111007, end: 20130819
  8. VYTORIN [Concomitant]
     Indication: BLOOD CHOLESTEROL ABNORMAL
     Dosage: 1 DF, DAILY
     Route: 048
     Dates: start: 20111007, end: 20130819
  9. ALOPURINOL [Concomitant]
     Indication: BLOOD URIC ACID ABNORMAL
     Dosage: 0.5 DF, DAILY
     Route: 048
  10. CYMBALTA [Concomitant]
     Indication: FIBROMYALGIA
     Dosage: 1 DF, DAILY
     Route: 048
  11. VITAMIN D3 [Concomitant]
     Indication: VITAMIN D DEFICIENCY
     Dosage: 1 DF, DAILY
     Route: 048

REACTIONS (9)
  - Septic shock [Fatal]
  - Pneumonia [Fatal]
  - Acute respiratory failure [Fatal]
  - Dyspnoea [Fatal]
  - Urinary tract infection [Fatal]
  - Hypertension [Fatal]
  - Senile dementia [Fatal]
  - Cardio-respiratory arrest [Fatal]
  - Parkinson^s disease [Not Recovered/Not Resolved]
